FAERS Safety Report 8467402-8 (Version None)
Quarter: 2012Q2

REPORT INFORMATION
  Report Type: 
  Country: None (occurrence: None)
  Receive Date: 20120626
  Receipt Date: 20120622
  Transmission Date: 20120825
  Serious: Yes (Hospitalization)
  Sender: FDA-Public Use
  Company Number: PHHO2010DE12738

PATIENT
  Sex: Female
  Weight: 78 kg

DRUGS (5)
  1. VITAMIN D [Concomitant]
  2. CALCIUM [Concomitant]
  3. LETROZOLE [Suspect]
     Indication: METASTASES TO BONE
     Dosage: 2.5 MG
     Route: 048
     Dates: start: 20070522
  4. CITALOPRAM HYDROBROMIDE [Concomitant]
  5. CONCOR [Concomitant]

REACTIONS (1)
  - ATAXIA [None]
